FAERS Safety Report 19666711 (Version 1)
Quarter: 2021Q3

REPORT INFORMATION
  Report Type: Spontaneous
  Country: US (occurrence: US)
  Receive Date: 20210806
  Receipt Date: 20210806
  Transmission Date: 20211014
  Serious: No
  Sender: FDA-Public Use
  Company Number: US-ASTRAZENECA-2021A668662

PATIENT
  Sex: Female
  Weight: 61.2 kg

DRUGS (2)
  1. SYNTHROID [Concomitant]
     Active Substance: LEVOTHYROXINE SODIUM
     Route: 065
  2. TAGRISSO [Suspect]
     Active Substance: OSIMERTINIB
     Indication: LUNG NEOPLASM MALIGNANT
     Route: 048

REACTIONS (10)
  - Skin lesion [Unknown]
  - Scleroderma [Not Recovered/Not Resolved]
  - Hypersomnia [Unknown]
  - Fatigue [Unknown]
  - Insomnia [Unknown]
  - Rash [Unknown]
  - Nasal discomfort [Unknown]
  - Peripheral swelling [Not Recovered/Not Resolved]
  - Stomatitis [Unknown]
  - Muscle rigidity [Not Recovered/Not Resolved]
